FAERS Safety Report 4648510-6 (Version None)
Quarter: 2005Q2

REPORT INFORMATION
  Report Type: 
  Country: None (occurrence: None)
  Receive Date: 20050427
  Receipt Date: 20050412
  Transmission Date: 20051028
  Serious: Yes (Life-Threatening, Hospitalization)
  Sender: FDA-Public Use
  Company Number: 8009200

PATIENT
  Age: 40 Year
  Sex: Female
  Weight: 70 kg

DRUGS (6)
  1. KEPPRA [Suspect]
     Indication: EPILEPSY
     Dosage: 1500 MG /D PO
     Route: 048
     Dates: start: 20041001
  2. KEPPRA [Suspect]
     Indication: EPILEPSY
     Dosage: 140000 MG ONCE PO
     Route: 048
  3. ZYPREXA [Suspect]
     Indication: PSYCHOTIC DISORDER
     Dosage: 10 MG /D PO
     Route: 048
  4. ZYPREXA [Suspect]
     Indication: PSYCHOTIC DISORDER
     Dosage: 500 MG ONCE PO
     Route: 048
  5. DIAZEPAM [Suspect]
     Dosage: ONCE PO
     Route: 048
  6. LAMICTAL [Suspect]
     Indication: EPILEPSY
     Dosage: 600 MG /D PO
     Route: 048

REACTIONS (9)
  - CATHETER RELATED COMPLICATION [None]
  - COMA [None]
  - HAEMODIALYSIS [None]
  - HYPOTENSION [None]
  - INTENTIONAL MISUSE [None]
  - OVERDOSE [None]
  - SOMNOLENCE [None]
  - SUICIDE ATTEMPT [None]
  - TACHYCARDIA [None]
